FAERS Safety Report 4709492-1 (Version None)
Quarter: 2005Q3

REPORT INFORMATION
  Report Type: 
  Country: None (occurrence: None)
  Receive Date: 20050706
  Receipt Date: 20050620
  Transmission Date: 20060218
  Serious: Yes (Hospitalization)
  Sender: FDA-Public Use
  Company Number: DSA_2205_2005

PATIENT
  Age: 58 Year
  Sex: Female
  Weight: 95 kg

DRUGS (11)
  1. EFLORNITHINE HYDROCHLORIDE VS. PLACEBO [Suspect]
     Indication: HIRSUTISM
     Dosage: 1 DF QDAY TOPICAL
     Route: 061
     Dates: start: 20041202, end: 20050623
  2. MEDIATOR [Concomitant]
  3. PROZAC [Concomitant]
  4. FERVEX [Concomitant]
  5. LISOPAINE [Concomitant]
  6. OROKEN [Concomitant]
  7. TUSSEDAN [Concomitant]
  8. PYOSTACINE [Concomitant]
  9. HELICIDINE [Concomitant]
  10. CONTANCYL [Concomitant]
  11. DERINOX [Concomitant]

REACTIONS (2)
  - PERITONITIS [None]
  - UNEVALUABLE EVENT [None]
